FAERS Safety Report 8195135 (Version 4)
Quarter: 2012Q4

REPORT INFORMATION
  Report Type: 
  Country: FR (occurrence: FR)
  Receive Date: 20111024
  Receipt Date: 20121001
  Transmission Date: 20130627
  Serious: Yes (Hospitalization)
  Sender: FDA-Public Use
  Company Number: FR-SANOFI-AVENTIS-2011SA067513

PATIENT
  Age: 61 Year
  Sex: Female

DRUGS (6)
  1. CLAFORAN [Suspect]
     Indication: ENDOCARDITIS INFECTIVE
     Dates: start: 20110703, end: 20110729
  2. VANCOMYCINE [Suspect]
     Indication: ENDOCARDITIS INFECTIVE
     Route: 042
     Dates: start: 20110703, end: 20110729
  3. INEXIUM [Suspect]
     Indication: DRUG USE FOR UNKNOWN INDICATION
     Route: 042
     Dates: start: 20110703, end: 20110808
  4. CIFLOX [Suspect]
     Indication: DRUG USE FOR UNKNOWN INDICATION
     Route: 042
     Dates: start: 20110718, end: 20110729
  5. TRIFLUCAN [Suspect]
     Indication: DRUG USE FOR UNKNOWN INDICATION
     Route: 042
     Dates: start: 20110718, end: 20110729
  6. HEXABRIX [Suspect]
     Indication: DRUG USE FOR UNKNOWN INDICATION
     Route: 042
     Dates: start: 20110713, end: 20110713

REACTIONS (1)
  - Drug reaction with eosinophilia and systemic symptoms [Recovered/Resolved]
